FAERS Safety Report 22293384 (Version 1)
Quarter: 2023Q2

REPORT INFORMATION
  Report Type: Other
  Country: GB (occurrence: GB)
  Receive Date: 20230508
  Receipt Date: 20230508
  Transmission Date: 20230722
  Serious: Yes (Other)
  Sender: FDA-Public Use
  Company Number: None

PATIENT

DRUGS (2)
  1. GABAPENTIN [Suspect]
     Active Substance: GABAPENTIN
     Indication: Product used for unknown indication
     Dosage: 300 MILLIGRAM
     Route: 065
  2. POLYETHYLENE GLYCOL 3350\POTASSIUM CHLORIDE\SODIUM BICARBONATE\SODIUM [Concomitant]
     Active Substance: POLYETHYLENE GLYCOL 3350\POTASSIUM CHLORIDE\SODIUM BICARBONATE\SODIUM CHLORIDE
     Indication: Product used for unknown indication
     Dosage: 6.9 GRAM, BID (PAEDIATRIC PLAIN ORAL POWDER 6.9G SACHETS;GALEN LTD)
     Route: 065
     Dates: start: 20230215

REACTIONS (6)
  - Personality disorder [Unknown]
  - Aggression [Unknown]
  - Anger [Unknown]
  - Abnormal behaviour [Unknown]
  - Hostility [Unknown]
  - Agitation [Unknown]

NARRATIVE: CASE EVENT DATE: 20230311
